FAERS Safety Report 10934028 (Version 3)
Quarter: 2015Q2

REPORT INFORMATION
  Report Type: Spontaneous
  Country: US (occurrence: US)
  Receive Date: 20150320
  Receipt Date: 20150414
  Transmission Date: 20150821
  Serious: Yes (Hospitalization, Other)
  Sender: FDA-Public Use
  Company Number: US-009507513-1110USA00463

PATIENT
  Sex: Female
  Weight: 72.11 kg

DRUGS (3)
  1. ALENDRONATE SODIUM. [Suspect]
     Active Substance: ALENDRONATE SODIUM
     Indication: OSTEOPOROSIS
     Dosage: 70 MG, UNK
     Dates: start: 20080303, end: 20101212
  2. FOSAMAX [Suspect]
     Active Substance: ALENDRONATE SODIUM
     Indication: OSTEOPOROSIS
     Dosage: 70 MG, UNK
     Route: 048
     Dates: start: 200109, end: 20080303
  3. ALENDRONATE SODIUM. [Suspect]
     Active Substance: ALENDRONATE SODIUM
     Indication: OSTEOPOROSIS
     Dosage: 70 MG, UNK
     Route: 048
     Dates: start: 20080303, end: 20101212

REACTIONS (16)
  - Body height decreased [Unknown]
  - Goitre [Unknown]
  - Open reduction of fracture [Unknown]
  - Femur fracture [Recovered/Resolved]
  - Gastrooesophageal reflux disease [Unknown]
  - Intramedullary rod insertion [Recovered/Resolved]
  - Wrist fracture [Unknown]
  - Wrist fracture [Unknown]
  - Fall [Unknown]
  - Hypertension [Unknown]
  - Thyroid disorder [Unknown]
  - Intramedullary rod insertion [Recovered/Resolved]
  - Procedural complication [Recovered/Resolved]
  - Varicose vein [Unknown]
  - Osteopenia [Unknown]
  - Femur fracture [Recovered/Resolved]

NARRATIVE: CASE EVENT DATE: 2005
